FAERS Safety Report 11192810 (Version 1)
Quarter: 2015Q2

REPORT INFORMATION
  Report Type: Spontaneous
  Country: None (occurrence: GB)
  Receive Date: 20150616
  Receipt Date: 20150616
  Transmission Date: 20150821
  Serious: Yes (Other)
  Sender: FDA-Public Use
  Company Number: GB-MEDAC PHARMA, INC.-1039984

PATIENT
  Age: 67 Year
  Sex: Female

DRUGS (1)
  1. METOJECT PEN [Suspect]
     Active Substance: METHOTREXATE

REACTIONS (4)
  - Nausea [Unknown]
  - Diverticulitis [Unknown]
  - Abdominal pain [Unknown]
  - Diarrhoea [Unknown]
